FAERS Safety Report 11653303 (Version 3)
Quarter: 2015Q4

REPORT INFORMATION
  Report Type: Spontaneous
  Country: BY (occurrence: BY)
  Receive Date: 20151022
  Receipt Date: 20151123
  Transmission Date: 20160304
  Serious: Yes (Death, Other)
  Sender: FDA-Public Use
  Company Number: BY-SEATTLE GENETICS-2015SGN01664

PATIENT

DRUGS (2)
  1. ADCETRIS [Suspect]
     Active Substance: BRENTUXIMAB VEDOTIN
     Indication: HODGKIN^S DISEASE
     Dosage: 150 MG, QD
     Route: 042
     Dates: start: 20151012, end: 20151012
  2. ADCETRIS [Suspect]
     Active Substance: BRENTUXIMAB VEDOTIN
     Indication: HODGKIN^S DISEASE

REACTIONS (4)
  - Asthenia [Fatal]
  - Pneumonia [Fatal]
  - Condition aggravated [Fatal]
  - Pancytopenia [Fatal]

NARRATIVE: CASE EVENT DATE: 20151015
